FAERS Safety Report 17878473 (Version 1)
Quarter: 2020Q2

REPORT INFORMATION
  Report Type: Spontaneous
  Country: CN (occurrence: CN)
  Receive Date: 20200610
  Receipt Date: 20200610
  Transmission Date: 20200714
  Serious: Yes (Other)
  Sender: FDA-Public Use
  Company Number: CN-ROCHE-2612845

PATIENT
  Age: 67 Year
  Sex: Male

DRUGS (31)
  1. IRINOTECAN [Concomitant]
     Active Substance: IRINOTECAN
     Indication: METASTASES TO RETROPERITONEUM
     Route: 065
  2. FLUOROURACIL. [Concomitant]
     Active Substance: FLUOROURACIL
     Indication: COLON CANCER
     Dosage: 0.74G VIA INTRAVENOUS INJECTION AND  2.2G VIA CONTINUE INTRAVENOUS DRIP FOR 46 HOURS
     Route: 041
     Dates: start: 20180123
  3. REGORAFENIB. [Concomitant]
     Active Substance: REGORAFENIB
     Indication: METASTASES TO LUNG
  4. OXALIPLATIN. [Concomitant]
     Active Substance: OXALIPLATIN
     Indication: COLON CANCER
     Route: 065
     Dates: start: 20170613, end: 20171006
  5. IRINOTECAN [Concomitant]
     Active Substance: IRINOTECAN
     Indication: COLON CANCER
     Route: 065
     Dates: start: 20180123
  6. AVASTIN [Suspect]
     Active Substance: BEVACIZUMAB
     Indication: METASTASES TO RETROPERITONEUM
     Route: 065
     Dates: start: 20171030, end: 20180101
  7. IRINOTECAN [Concomitant]
     Active Substance: IRINOTECAN
     Indication: METASTASES TO LUNG
     Route: 065
     Dates: start: 20190407
  8. CETUXIMAB. [Concomitant]
     Active Substance: CETUXIMAB
     Indication: COLON CANCER
     Route: 065
     Dates: start: 20181112, end: 20190117
  9. NIFEDIPINE. [Concomitant]
     Active Substance: NIFEDIPINE
     Indication: HYPERTENSION
     Route: 065
  10. CETUXIMAB. [Concomitant]
     Active Substance: CETUXIMAB
     Indication: METASTASES TO LUNG
     Route: 065
     Dates: end: 20190616
  11. RALTITREXED [Concomitant]
     Active Substance: RALTITREXED
     Indication: COLON CANCER
     Route: 065
     Dates: start: 20190407
  12. REGORAFENIB. [Concomitant]
     Active Substance: REGORAFENIB
     Indication: METASTASES TO RETROPERITONEUM
  13. AVASTIN [Suspect]
     Active Substance: BEVACIZUMAB
     Indication: COLON CANCER
     Route: 065
     Dates: start: 20170613, end: 20171006
  14. AVASTIN [Suspect]
     Active Substance: BEVACIZUMAB
     Indication: METASTASES TO LUNG
     Route: 065
     Dates: start: 20180123
  15. CALCIUM FOLINATE [Concomitant]
     Active Substance: LEUCOVORIN CALCIUM
     Indication: COLON CANCER
     Route: 065
     Dates: start: 20181112, end: 20190117
  16. CALCIUM FOLINATE [Concomitant]
     Active Substance: LEUCOVORIN CALCIUM
     Indication: METASTASES TO RETROPERITONEUM
  17. OXALIPLATIN. [Concomitant]
     Active Substance: OXALIPLATIN
     Indication: METASTASES TO RETROPERITONEUM
     Route: 065
     Dates: start: 20181112, end: 20190117
  18. RALTITREXED [Concomitant]
     Active Substance: RALTITREXED
     Indication: METASTASES TO LUNG
  19. XELODA [Suspect]
     Active Substance: CAPECITABINE
     Indication: METASTASES TO LUNG
  20. FRUQUINTINIB. [Concomitant]
     Active Substance: FRUQUINTINIB
     Indication: METASTASES TO RETROPERITONEUM
  21. XELODA [Suspect]
     Active Substance: CAPECITABINE
     Indication: METASTASES TO RETROPERITONEUM
     Route: 065
     Dates: start: 20171030, end: 20180101
  22. FRUQUINTINIB. [Concomitant]
     Active Substance: FRUQUINTINIB
     Indication: COLON CANCER
     Route: 065
     Dates: start: 201912
  23. FRUQUINTINIB. [Concomitant]
     Active Substance: FRUQUINTINIB
     Indication: METASTASES TO LUNG
  24. FLUOROURACIL. [Concomitant]
     Active Substance: FLUOROURACIL
     Indication: METASTASES TO RETROPERITONEUM
     Route: 065
     Dates: start: 20181112, end: 20190117
  25. FLUOROURACIL. [Concomitant]
     Active Substance: FLUOROURACIL
     Indication: METASTASES TO LUNG
  26. CETUXIMAB. [Concomitant]
     Active Substance: CETUXIMAB
     Indication: METASTASES TO RETROPERITONEUM
     Route: 065
     Dates: start: 20190407
  27. RALTITREXED [Concomitant]
     Active Substance: RALTITREXED
     Indication: METASTASES TO RETROPERITONEUM
     Route: 065
     Dates: end: 20190616
  28. XELODA [Suspect]
     Active Substance: CAPECITABINE
     Indication: COLON CANCER
     Route: 065
     Dates: start: 20170613, end: 20171006
  29. CALCIUM FOLINATE [Concomitant]
     Active Substance: LEUCOVORIN CALCIUM
     Indication: METASTASES TO LUNG
  30. OXALIPLATIN. [Concomitant]
     Active Substance: OXALIPLATIN
     Indication: METASTASES TO LUNG
  31. REGORAFENIB. [Concomitant]
     Active Substance: REGORAFENIB
     Indication: COLON CANCER
     Route: 065
     Dates: start: 20190705

REACTIONS (3)
  - Hypothyroidism [Unknown]
  - Mouth ulceration [Unknown]
  - Bone marrow failure [Recovered/Resolved]

NARRATIVE: CASE EVENT DATE: 2018
